FAERS Safety Report 9507832 (Version 1)
Quarter: 2013Q3

REPORT INFORMATION
  Report Type: Spontaneous
  Country: CO (occurrence: CO)
  Receive Date: 20130909
  Receipt Date: 20130909
  Transmission Date: 20140515
  Serious: Yes (Death)
  Sender: FDA-Public Use
  Company Number: CO-PFIZER INC-2013254594

PATIENT
  Age: 89 Year
  Sex: Male

DRUGS (1)
  1. XALATAN [Suspect]
     Indication: BLINDNESS
     Dosage: 2.5 ML, UNK
     Route: 047
     Dates: start: 2012

REACTIONS (2)
  - Cardiac arrest [Fatal]
  - Off label use [Unknown]
